FAERS Safety Report 25653190 (Version 1)
Quarter: 2025Q3

REPORT INFORMATION
  Report Type: Spontaneous
  Country: EU (occurrence: EU)
  Receive Date: 20250807
  Receipt Date: 20250807
  Transmission Date: 20251021
  Serious: Yes (Hospitalization, Other)
  Sender: AUROBINDO
  Company Number: EU-MLMSERVICE-20250721-PI586383-00089-1

PATIENT
  Age: 66 Year
  Sex: Male

DRUGS (3)
  1. CEFTRIAXONE [Suspect]
     Active Substance: CEFTRIAXONE
     Indication: Whipple^s disease
     Dosage: 2 GRAM, ONCE A DAY
     Route: 051
     Dates: start: 202207
  2. METRONIDAZOLE [Suspect]
     Active Substance: METRONIDAZOLE
     Indication: Product used for unknown indication
     Route: 065
  3. TETRACYCLINE [Suspect]
     Active Substance: TETRACYCLINE
     Indication: Product used for unknown indication
     Route: 065

REACTIONS (5)
  - Whipple^s disease [Recovered/Resolved]
  - Giardiasis [Recovered/Resolved]
  - Lymphadenopathy [Recovered/Resolved]
  - Hepatosplenomegaly [Recovered/Resolved]
  - Jarisch-Herxheimer reaction [Recovered/Resolved]

NARRATIVE: CASE EVENT DATE: 20220101
